FAERS Safety Report 25589135 (Version 3)
Quarter: 2025Q3

REPORT INFORMATION
  Report Type: Spontaneous
  Country: EU (occurrence: EU)
  Receive Date: 20250722
  Receipt Date: 20250801
  Transmission Date: 20251020
  Serious: Yes (Other)
  Sender: AMGEN
  Company Number: None

PATIENT
  Age: 21 Year
  Sex: Male
  Weight: 68 kg

DRUGS (1)
  1. PEGFILGRASTIM [Suspect]
     Active Substance: PEGFILGRASTIM
     Indication: Infantile genetic agranulocytosis
     Dosage: 65 MCG/KG/WEEK
     Route: 058
     Dates: start: 201111, end: 202309

REACTIONS (3)
  - Myelodysplastic syndrome [Recovered/Resolved]
  - Acute myeloid leukaemia [Recovered/Resolved]
  - Off label use [Unknown]

NARRATIVE: CASE EVENT DATE: 20111101
